FAERS Safety Report 7714945-8 (Version None)
Quarter: 2011Q3

REPORT INFORMATION
  Report Type: 
  Country: None (occurrence: None)
  Receive Date: 20110829
  Receipt Date: 20110826
  Transmission Date: 20111222
  Serious: Yes (Hospitalization)
  Sender: FDA-Public Use
  Company Number: GB-TEVA-286937ISR

PATIENT
  Age: 71 Year
  Sex: Male

DRUGS (1)
  1. SIMAVASTATIN [Suspect]
     Indication: HYPERCHOLESTEROLAEMIA
     Route: 048
     Dates: start: 20110305, end: 20110523

REACTIONS (4)
  - DIARRHOEA [None]
  - RENAL FAILURE ACUTE [None]
  - VOMITING [None]
  - HYPOTENSION [None]
